FAERS Safety Report 22179261 (Version 2)
Quarter: 2023Q2

REPORT INFORMATION
  Report Type: Spontaneous
  Country: US (occurrence: US)
  Receive Date: 20230406
  Receipt Date: 20230411
  Transmission Date: 20230722
  Serious: Yes (Other)
  Sender: FDA-Public Use
  Company Number: US-REGENERON PHARMACEUTICALS, INC.-2023-049934

PATIENT
  Sex: Female

DRUGS (4)
  1. EYLEA [Suspect]
     Active Substance: AFLIBERCEPT
     Indication: Neovascular age-related macular degeneration
     Dosage: UNK (FORMULATION: UNKNOWN)
  2. BONIVA [Concomitant]
     Active Substance: IBANDRONATE SODIUM
     Indication: Product used for unknown indication
  3. BETADINE [Concomitant]
     Active Substance: POVIDONE-IODINE
     Indication: Product used for unknown indication
  4. AVASTIN [Concomitant]
     Active Substance: BEVACIZUMAB
     Indication: Product used for unknown indication

REACTIONS (10)
  - Eye haemorrhage [Unknown]
  - Ocular hypertension [Unknown]
  - Eye contusion [Unknown]
  - Ear pain [Unknown]
  - Feeling abnormal [Unknown]
  - Eye disorder [Unknown]
  - Visual impairment [Unknown]
  - Injection site discomfort [Unknown]
  - Vision blurred [Unknown]
  - Eye pain [Unknown]
